FAERS Safety Report 10110494 (Version 2)
Quarter: 2014Q2

REPORT INFORMATION
  Report Type: Spontaneous
  Country: US (occurrence: US)
  Receive Date: 20140425
  Receipt Date: 20140514
  Transmission Date: 20141212
  Serious: Yes (Hospitalization)
  Sender: FDA-Public Use
  Company Number: US-JNJFOC-20140414090

PATIENT
  Age: 59 Year
  Sex: Female
  Weight: 96.16 kg

DRUGS (9)
  1. INVOKANA [Suspect]
     Indication: PRODUCT USED FOR UNKNOWN INDICATION
     Route: 048
     Dates: start: 20140116, end: 20140405
  2. BENAZEPRIL [Suspect]
     Indication: BLOOD PRESSURE
     Dates: end: 20140405
  3. PAXIL [Concomitant]
  4. LEVOTHYROXINE [Concomitant]
  5. TYLENOL [Concomitant]
  6. CRESTOR [Concomitant]
  7. ACTOS [Concomitant]
  8. METFORMIN [Concomitant]
  9. ASA [Concomitant]

REACTIONS (3)
  - Angioedema [Recovered/Resolved]
  - Anaphylactic reaction [Recovered/Resolved]
  - Renal failure acute [Recovered/Resolved]
